FAERS Safety Report 5719726-2 (Version None)
Quarter: 2008Q2

REPORT INFORMATION
  Report Type: 
  Country: None (occurrence: None)
  Receive Date: 20080428
  Receipt Date: 20080214
  Transmission Date: 20081010
  Serious: Yes (Other)
  Sender: FDA-Public Use
  Company Number: A0709670A

PATIENT
  Age: 44 Year
  Sex: Female

DRUGS (18)
  1. ONDANSETRON [Suspect]
     Indication: PROPHYLAXIS OF NAUSEA AND VOMITING
     Dosage: 4MG AS REQUIRED
     Route: 042
     Dates: start: 20011104
  2. LIDOCAINE + MAALOX [Concomitant]
  3. TYLENOL [Concomitant]
  4. MORPHINE [Concomitant]
  5. NITROGLYCERIN [Concomitant]
  6. PROTONIX [Concomitant]
  7. HEPARIN [Concomitant]
  8. NITROGLYCERIN [Concomitant]
  9. KETOROLAC TROMETHAMINE [Concomitant]
  10. DULOXETINE [Concomitant]
  11. ASPIRIN [Concomitant]
  12. PLAVIX [Concomitant]
  13. PRILOSEC [Concomitant]
  14. ZETIA [Concomitant]
  15. VENLAFAXINE HCL [Concomitant]
  16. UNSPECIFIED FIBRATE MEDICATION [Concomitant]
  17. ZOCOR [Concomitant]
     Dates: start: 20070101
  18. CRESTOR [Concomitant]
     Dates: start: 20070101

REACTIONS (3)
  - ALANINE AMINOTRANSFERASE INCREASED [None]
  - ASPARTATE AMINOTRANSFERASE INCREASED [None]
  - HEPATIC ENZYME INCREASED [None]
